FAERS Safety Report 11545768 (Version 1)
Quarter: 2015Q3

REPORT INFORMATION
  Report Type: Spontaneous
  Country: US (occurrence: US)
  Receive Date: 20150924
  Receipt Date: 20150924
  Transmission Date: 20151125
  Serious: No
  Sender: FDA-Public Use
  Company Number: US-GLAXOSMITHKLINE-US2015135770

PATIENT
  Age: 71 Year
  Sex: Male

DRUGS (1)
  1. FLONASE [Suspect]
     Active Substance: FLUTICASONE PROPIONATE
     Indication: BREATH ODOUR
     Dosage: UNK
     Dates: start: 20150922, end: 20150922

REACTIONS (4)
  - Abdominal discomfort [Not Recovered/Not Resolved]
  - Dizziness [Not Recovered/Not Resolved]
  - Product use issue [Not Recovered/Not Resolved]
  - Nonspecific reaction [Not Recovered/Not Resolved]

NARRATIVE: CASE EVENT DATE: 20150922
